FAERS Safety Report 10021291 (Version 1)
Quarter: 2014Q1

REPORT INFORMATION
  Report Type: Spontaneous
  Country: US (occurrence: None)
  Receive Date: 20140318
  Receipt Date: 20140318
  Transmission Date: 20141002
  Serious: Yes (Life-Threatening)
  Sender: FDA-Public Use
  Company Number: None

PATIENT
  Age: 49 Year
  Sex: Female

DRUGS (1)
  1. ENBREL SURECLICK 50MG AMGEN INC [Suspect]
     Indication: ILL-DEFINED DISORDER
     Dosage: 50MG ONCE PER WK SQ
     Route: 058
     Dates: start: 20130624, end: 20130814

REACTIONS (2)
  - Hypoaesthesia [None]
  - Cerebrovascular accident [None]
